FAERS Safety Report 13517180 (Version 3)
Quarter: 2017Q2

REPORT INFORMATION
  Report Type: Report from Study
  Country: ES (occurrence: ES)
  Receive Date: 20170505
  Receipt Date: 20170530
  Transmission Date: 20170830
  Serious: Yes (Hospitalization)
  Sender: FDA-Public Use
  Company Number: ES-ROCHE-1930717

PATIENT
  Age: 59 Year
  Sex: Female
  Weight: 53.4 kg

DRUGS (8)
  1. FUROSEMIDA [Concomitant]
     Active Substance: FUROSEMIDE
  2. ATEZOLIZUMAB [Suspect]
     Active Substance: ATEZOLIZUMAB
     Indication: LUNG NEOPLASM MALIGNANT
     Dosage: MOST RECENT DOSE PRIOR TO EVENT ONSET 25/APR/2017
     Route: 042
     Dates: start: 20170404
  3. SALBUTAMOL [Concomitant]
     Active Substance: ALBUTEROL
  4. RO 6895882 (CEA-IL2V) [Suspect]
     Active Substance: INVESTIGATIONAL PRODUCT
     Route: 042
     Dates: start: 20170522
  5. OBINUTUZUMAB [Suspect]
     Active Substance: OBINUTUZUMAB
     Indication: LUNG NEOPLASM MALIGNANT
     Dosage: MOST RECENT DOSE ADMINISTERED PRIOR TO EVENT ONSET 28/MAR/2017
     Route: 042
     Dates: start: 20170328, end: 20170328
  6. LORMETAZEPAM [Concomitant]
     Active Substance: LORMETAZEPAM
  7. SERETIDE [Concomitant]
     Active Substance: FLUTICASONE PROPIONATE\SALMETEROL XINAFOATE
  8. RO 6895882 (CEA-IL2V) [Suspect]
     Active Substance: INVESTIGATIONAL PRODUCT
     Indication: LUNG NEOPLASM MALIGNANT
     Dosage: MOST RECENT DOSE PRIOR TO EVENT ONSET 02/MAY/2017?INTERRUPTED ON 09/MAY/2017
     Route: 042
     Dates: start: 20170404, end: 20170509

REACTIONS (1)
  - Pulmonary embolism [Recovered/Resolved]

NARRATIVE: CASE EVENT DATE: 20170502
